FAERS Safety Report 5890490-X (Version None)
Quarter: 2008Q3

REPORT INFORMATION
  Report Type: 
  Country: None (occurrence: None)
  Receive Date: 20080918
  Receipt Date: 20080904
  Transmission Date: 20090109
  Serious: Yes (Congenital Anomaly)
  Sender: FDA-Public Use
  Company Number: 1000000956

PATIENT

DRUGS (2)
  1. ESCITALOPRAM [Suspect]
     Dosage: 30 MG (30 MG, 1 IN 1 D) , TRANSPLACENTAL
     Route: 064
     Dates: end: 20080101
  2. ABILIFY [Suspect]
     Dosage: 30 MG (30 MG, 1 IN 1 D) , TRANSPLACENTAL
     Route: 064
     Dates: end: 20080101

REACTIONS (6)
  - DYSMORPHISM [None]
  - EAR MALFORMATION [None]
  - FEEDING DISORDER NEONATAL [None]
  - HYPOTONIA NEONATAL [None]
  - MATERNAL DRUGS AFFECTING FOETUS [None]
  - MULTIPLE CONGENITAL ABNORMALITIES [None]
